FAERS Safety Report 10078925 (Version 1)
Quarter: 2014Q2

REPORT INFORMATION
  Report Type: Spontaneous
  Country: FR (occurrence: FR)
  Receive Date: 20140415
  Receipt Date: 20140415
  Transmission Date: 20141212
  Serious: Yes (Death)
  Sender: FDA-Public Use
  Company Number: FR-PFIZER INC-2014101532

PATIENT
  Age: 42 Year
  Sex: Female

DRUGS (6)
  1. NORTRIPTYLINE [Concomitant]
  2. ETHANOL [Concomitant]
  3. LYRICA [Suspect]
     Dosage: UNK
  4. TRAMADOL HCL [Suspect]
     Dosage: UNK
  5. PARACETAMOL [Suspect]
     Dosage: UNK
  6. AMITRIPTYLINE [Concomitant]
     Dosage: UNK

REACTIONS (1)
  - Overdose [Fatal]
